FAERS Safety Report 6345416-1 (Version None)
Quarter: 2009Q3

REPORT INFORMATION
  Report Type: 
  Country: None (occurrence: None)
  Receive Date: 20090909
  Receipt Date: 20090902
  Transmission Date: 20100115
  Serious: Yes (Hospitalization)
  Sender: FDA-Public Use
  Company Number: JP-ABBOTT-09P-087-0592909-00

PATIENT
  Age: 52 Year
  Sex: Male

DRUGS (6)
  1. KLARICID [Suspect]
     Indication: PYREXIA
     Dosage: NOT REPORTED
  2. KLARICID [Suspect]
     Indication: PRODUCTIVE COUGH
  3. CEFTRIAXONE [Suspect]
     Indication: PYREXIA
     Route: 041
  4. CEFTRIAXONE [Suspect]
     Indication: PRODUCTIVE COUGH
  5. OVER-THE-COUNTER GENERAL COLD MEDICINEORAL [Suspect]
     Indication: RHINORRHOEA
     Route: 048
  6. OVER-THE-COUNTER GENERAL COLD MEDICINEORAL [Suspect]
     Indication: OROPHARYNGEAL PAIN

REACTIONS (1)
  - EOSINOPHILIC PNEUMONIA [None]
